FAERS Safety Report 6178048-9 (Version None)
Quarter: 2009Q2

REPORT INFORMATION
  Report Type: 
  Country: None (occurrence: None)
  Receive Date: 20090430
  Receipt Date: 20090423
  Transmission Date: 20091009
  Serious: Yes (Disabling)
  Sender: FDA-Public Use
  Company Number: ADE2009-0586

PATIENT
  Age: 81 Year
  Sex: Female

DRUGS (9)
  1. SIMVASTATIN [Suspect]
     Indication: BLOOD CHOLESTEROL INCREASED
     Dosage: 40MG, ORAL
     Route: 048
     Dates: start: 20061114, end: 20070601
  2. ALLOPURINOL [Suspect]
     Indication: GOUT
     Dosage: 300MG, ORAL
     Route: 048
     Dates: start: 20060901, end: 20070501
  3. ASPIRIN [Concomitant]
  4. ATENOLOL [Concomitant]
  5. BUMETANIDE [Concomitant]
  6. FERROUS SULFATE TAB [Concomitant]
  7. FRUSEMIDE [Concomitant]
  8. LISINOPRIL [Concomitant]
  9. LEVOTHYROXINE SODIUM [Concomitant]

REACTIONS (3)
  - APLASTIC ANAEMIA [None]
  - NEUTROPHIL COUNT DECREASED [None]
  - PLATELET COUNT DECREASED [None]
